FAERS Safety Report 18706112 (Version 1)
Quarter: 2021Q1

REPORT INFORMATION
  Report Type: Spontaneous
  Country: US (occurrence: US)
  Receive Date: 20210105
  Receipt Date: 20210105
  Transmission Date: 20210419
  Serious: Yes (Other)
  Sender: FDA-Public Use
  Company Number: None

PATIENT
  Age: 30 Year
  Sex: Female
  Weight: 94 kg

DRUGS (1)
  1. BUPIVACAINE. [Suspect]
     Active Substance: BUPIVACAINE
     Indication: SPINAL ANAESTHESIA
     Dosage: ?          OTHER FREQUENCY:Q17MIN X2 DOSES;?
     Route: 039
     Dates: start: 20201218, end: 20201218

REACTIONS (2)
  - Anaesthetic complication [None]
  - Drug ineffective [None]

NARRATIVE: CASE EVENT DATE: 20201218
